FAERS Safety Report 14556095 (Version 1)
Quarter: 2018Q1

REPORT INFORMATION
  Report Type: Spontaneous
  Country: US (occurrence: US)
  Receive Date: 20180221
  Receipt Date: 20180221
  Transmission Date: 20180509
  Serious: Yes (Other)
  Sender: FDA-Public Use
  Company Number: US-009507513-1802USA009447

PATIENT
  Age: 22 Year
  Sex: Female

DRUGS (1)
  1. NEXPLANON [Suspect]
     Active Substance: ETONOGESTREL
     Indication: CONTRACEPTION
     Dosage: 68 MG ONE TIME, IN THE LEFT ARM
     Route: 059
     Dates: start: 20171221, end: 20180213

REACTIONS (2)
  - Implant site pain [Unknown]
  - Implant site pruritus [Unknown]

NARRATIVE: CASE EVENT DATE: 20180213
